FAERS Safety Report 6834424-X (Version None)
Quarter: 2010Q3

REPORT INFORMATION
  Report Type: 
  Country: None (occurrence: None)
  Receive Date: 20100712
  Receipt Date: 20070413
  Transmission Date: 20110219
  Serious: No
  Sender: FDA-Public Use
  Company Number: US-PFIZER INC-2007030921

PATIENT
  Sex: Female
  Weight: 55.5 kg

DRUGS (15)
  1. CHANTIX [Suspect]
     Indication: SMOKING CESSATION THERAPY
     Dates: start: 20070328
  2. CELEXA [Concomitant]
  3. NEURONTIN [Concomitant]
  4. VICODIN [Concomitant]
     Indication: MUSCLE SPASMS
  5. VALIUM [Concomitant]
  6. MULTI-VITAMINS [Concomitant]
  7. LINSEED OIL [Concomitant]
  8. CO-Q-10 [Concomitant]
  9. FOLIC ACID [Concomitant]
  10. GARLIC [Concomitant]
  11. VITAMIN C [Concomitant]
  12. VITACAL [Concomitant]
  13. ACETIC ACID [Concomitant]
  14. CHONDROITIN/GLUCOSAMINE [Concomitant]
  15. VITAMIN E [Concomitant]

REACTIONS (3)
  - MALAISE [None]
  - NAUSEA [None]
  - SOMNOLENCE [None]
